FAERS Safety Report 5722084-0 (Version None)
Quarter: 2008Q2

REPORT INFORMATION
  Report Type: 
  Country: None (occurrence: None)
  Receive Date: 20080429
  Receipt Date: 20070615
  Transmission Date: 20081010
  Serious: No
  Sender: FDA-Public Use
  Company Number: US-ASTRAZENECA-2007UW14474

PATIENT
  Age: 56 Year
  Sex: Female
  Weight: 77.1 kg

DRUGS (2)
  1. NEXIUM [Suspect]
     Indication: GASTROOESOPHAGEAL REFLUX DISEASE
     Route: 048
  2. MINOCYCLINE HCL [Concomitant]

REACTIONS (7)
  - CHEILITIS [None]
  - DISCOMFORT [None]
  - EYE SWELLING [None]
  - LIP SWELLING [None]
  - NASAL DISCOMFORT [None]
  - NASAL OEDEMA [None]
  - OCULAR HYPERAEMIA [None]
